FAERS Safety Report 7794610-1 (Version None)
Quarter: 2011Q3

REPORT INFORMATION
  Report Type: 
  Country: None (occurrence: None)
  Receive Date: 20110930
  Receipt Date: 20110920
  Transmission Date: 20111222
  Serious: Yes (Hospitalization, Other)
  Sender: FDA-Public Use
  Company Number: 2011SP039997

PATIENT
  Age: 40 Year
  Sex: Male
  Weight: 80 kg

DRUGS (4)
  1. CLARITHROMYCIN [Suspect]
     Indication: TONSILLITIS STREPTOCOCCAL
     Dosage: 500 MG;BID;
     Dates: start: 20110427, end: 20110504
  2. PENICILLIN V [Suspect]
     Indication: TONSILLITIS STREPTOCOCCAL
     Dosage: 1.5 GM;TID;
     Dates: start: 20110523, end: 20110530
  3. ERYTHROMYCIN [Concomitant]
     Indication: TONSILLITIS STREPTOCOCCAL
     Dosage: 500 MG;TID;
     Dates: start: 20110507, end: 20110515
  4. MIRTAZAPINE [Suspect]
     Indication: DEPRESSION
     Dosage: 30 MG;QD;PO
     Route: 048
     Dates: start: 20040501

REACTIONS (25)
  - WEIGHT INCREASED [None]
  - DIARRHOEA [None]
  - APATHY [None]
  - TONSILLITIS STREPTOCOCCAL [None]
  - MYOCARDIAL ISCHAEMIA [None]
  - FATIGUE [None]
  - DRUG INTERACTION [None]
  - DRUG INEFFECTIVE [None]
  - DEHYDRATION [None]
  - PALPITATIONS [None]
  - DIZZINESS [None]
  - BLOOD TRIGLYCERIDES INCREASED [None]
  - ANXIETY [None]
  - IMPAIRED DRIVING ABILITY [None]
  - DRY MOUTH [None]
  - HYPOKALAEMIA [None]
  - CHEST PAIN [None]
  - BURNING SENSATION [None]
  - DEPRESSION [None]
  - DRUG WITHDRAWAL SYNDROME [None]
  - DISEASE RECURRENCE [None]
  - NAUSEA [None]
  - INSOMNIA [None]
  - THINKING ABNORMAL [None]
  - PANIC DISORDER [None]
